FAERS Safety Report 16554844 (Version 4)
Quarter: 2019Q4

REPORT INFORMATION
  Report Type: Report from Study
  Country: FR (occurrence: FR)
  Receive Date: 20190710
  Receipt Date: 20191016
  Transmission Date: 20200122
  Serious: Yes (Other)
  Sender: FDA-Public Use
  Company Number: FR-ASTELLAS-2019US027859

PATIENT
  Sex: Female

DRUGS (1)
  1. TACROLIMUS. [Suspect]
     Active Substance: TACROLIMUS
     Indication: IMMUNOSUPPRESSION
     Route: 048
     Dates: start: 20180208

REACTIONS (3)
  - Diabetes mellitus [Unknown]
  - Oropharyngeal pain [Recovered/Resolved]
  - Cervical dysplasia [Unknown]

NARRATIVE: CASE EVENT DATE: 201803
